APPROVED DRUG PRODUCT: PRED-G
Active Ingredient: GENTAMICIN SULFATE; PREDNISOLONE ACETATE
Strength: EQ 0.3% BASE;1%
Dosage Form/Route: SUSPENSION/DROPS;OPHTHALMIC
Application: N050586 | Product #001
Applicant: ALLERGAN PHARMACEUTICAL
Approved: Jun 10, 1988 | RLD: Yes | RS: No | Type: DISCN